FAERS Safety Report 5327968-3 (Version None)
Quarter: 2007Q2

REPORT INFORMATION
  Report Type: 
  Country: None (occurrence: None)
  Receive Date: 20070517
  Receipt Date: 20070508
  Transmission Date: 20071010
  Serious: Yes (Other)
  Sender: FDA-Public Use
  Company Number: US-ABBOTT-07P-163-0367394-00

PATIENT
  Age: 30 Year
  Sex: Female

DRUGS (5)
  1. NORVIR [Suspect]
     Indication: SYSTEMIC ANTIVIRAL TREATMENT
     Route: 048
     Dates: start: 20041119, end: 20051215
  2. KALETRA [Suspect]
     Indication: SYSTEMIC ANTIVIRAL TREATMENT
     Dosage: 250/50 MILLIGRAMS
     Route: 048
     Dates: start: 20051215
  3. KALETRA [Suspect]
     Dosage: 250/50 MILLIG
     Route: 048
     Dates: start: 20060907
  4. FOSAMPRENAVIR CALCIUM [Suspect]
     Indication: SYSTEMIC ANTIVIRAL TREATMENT
     Route: 048
     Dates: start: 20041119, end: 20051215
  5. ABACAVIR/LAMIVUDINE [Suspect]
     Indication: SYSTEMIC ANTIVIRAL TREATMENT
     Dosage: 600/300 MILLIG
     Route: 048
     Dates: start: 20041119

REACTIONS (1)
  - ABORTION SPONTANEOUS [None]
